FAERS Safety Report 20355857 (Version 1)
Quarter: 2022Q1

REPORT INFORMATION
  Report Type: Spontaneous
  Country: JP (occurrence: None)
  Receive Date: 20220120
  Receipt Date: 20220120
  Transmission Date: 20220424
  Serious: Yes (Hospitalization)
  Sender: FDA-Public Use
  Company Number: 2022A023131

PATIENT
  Age: 60 Year
  Sex: Male

DRUGS (3)
  1. CRESTOR [Suspect]
     Active Substance: ROSUVASTATIN CALCIUM
     Indication: Dyslipidaemia
     Dosage: 2.5MG UNKNOWN
     Route: 048
  2. SHAKUYAKUKANZOTO [Suspect]
     Active Substance: HERBALS
     Indication: Myalgia
     Dosage: DOSE UNKNOWN, AS NEEDED
     Route: 048
  3. METFORMIN HYDROCHLORIDE [Concomitant]
     Active Substance: METFORMIN HYDROCHLORIDE
     Indication: Type 2 diabetes mellitus
     Dosage: DOSE UNKNOWN
     Route: 065

REACTIONS (2)
  - Lactic acidosis [Recovered/Resolved]
  - Rhabdomyolysis [Recovered/Resolved]
